FAERS Safety Report 16084397 (Version 3)
Quarter: 2020Q4

REPORT INFORMATION
  Report Type: Report from Study
  Country: JP (occurrence: JP)
  Receive Date: 20190318
  Receipt Date: 20201229
  Transmission Date: 20210113
  Serious: Yes (Death, Life-Threatening, Hospitalization, Other)
  Sender: FDA-Public Use
  Company Number: PHHY2013JP170559

PATIENT
  Age: 71 Year
  Sex: Male

DRUGS (5)
  1. MAINTATE [Suspect]
     Active Substance: BISOPROLOL FUMARATE
     Indication: HYPERTENSION
     Dosage: 2.5 MG, QD
     Route: 048
     Dates: start: 20130422, end: 20130605
  2. CELECOX [Concomitant]
     Active Substance: CELECOXIB
     Indication: PAIN
     Dosage: 100 MG, BID
     Route: 065
     Dates: start: 20130325, end: 20130605
  3. VOTRIENT [Suspect]
     Active Substance: PAZOPANIB HYDROCHLORIDE
     Indication: LIPOSARCOMA
     Dosage: 800 MG, QD
     Route: 048
     Dates: start: 20130326, end: 20130605
  4. DIOVAN [Concomitant]
     Active Substance: VALSARTAN
     Indication: HYPERTENSION
     Dosage: 80 MG, QD
     Route: 065
     Dates: start: 20130311, end: 20130605
  5. AMLODIN [Suspect]
     Active Substance: AMLODIPINE BESYLATE
     Indication: HYPERTENSION
     Dosage: 5 MG, QD
     Route: 048
     Dates: start: 20130311, end: 20130605

REACTIONS (12)
  - Hypoxia [Not Recovered/Not Resolved]
  - Diarrhoea [Recovered/Resolved]
  - Decreased appetite [Recovered/Resolved]
  - Hypoalbuminaemia [Unknown]
  - Liposarcoma [Unknown]
  - Respiratory failure [Fatal]
  - Bradycardia [Recovered/Resolved]
  - Pleural effusion [Unknown]
  - Malignant neoplasm progression [Unknown]
  - Interstitial lung disease [Fatal]
  - Dehydration [Recovered/Resolved]
  - Hypotension [Recovered/Resolved]

NARRATIVE: CASE EVENT DATE: 20130516
